FAERS Safety Report 5299425-4 (Version None)
Quarter: 2007Q2

REPORT INFORMATION
  Report Type: 
  Country: None (occurrence: None)
  Receive Date: 20070417
  Receipt Date: 20070416
  Transmission Date: 20071010
  Serious: Yes (Hospitalization, Other)
  Sender: FDA-Public Use
  Company Number: FR-BRISTOL-MYERS SQUIBB COMPANY-13730122

PATIENT
  Age: 78 Year
  Sex: Male
  Weight: 83 kg

DRUGS (8)
  1. ELISOR TABS 20 MG [Suspect]
     Indication: HYPERCHOLESTEROLAEMIA
     Route: 048
     Dates: end: 20070110
  2. TRIATEC [Suspect]
     Indication: HYPERTENSION
     Dates: start: 20061224, end: 20070107
  3. AMLOR [Suspect]
     Indication: HYPERTENSION
     Dates: start: 20061224
  4. VANCOMYCIN [Suspect]
     Dosage: VANCOMYCIN IV: ALSO RECEIVED ON 10-JAN-2007.
     Dates: start: 20061214, end: 20070110
  5. RIFAMPICIN [Suspect]
     Route: 047
     Dates: start: 20061214, end: 20061227
  6. GENTALLINE [Suspect]
     Indication: ACUTE ENDOCARDITIS
     Dates: start: 20061214, end: 20061221
  7. STILNOX [Concomitant]
     Dates: start: 20061215
  8. DETENSIEL [Concomitant]

REACTIONS (6)
  - CYTOLYTIC HEPATITIS [None]
  - ENDOCARDITIS [None]
  - ERYSIPELAS [None]
  - RASH [None]
  - RED MAN SYNDROME [None]
  - RENAL FAILURE ACUTE [None]
